FAERS Safety Report 5387216-5 (Version None)
Quarter: 2007Q3

REPORT INFORMATION
  Report Type: 
  Country: None (occurrence: None)
  Receive Date: 20070711
  Receipt Date: 20070626
  Transmission Date: 20080115
  Serious: Yes (Hospitalization)
  Sender: FDA-Public Use
  Company Number: S07-GER-02903-01

PATIENT
  Age: 45 Year
  Sex: Female

DRUGS (6)
  1. CITALOPRAM HYDROBROMIDE [Suspect]
     Indication: DEPRESSION
     Dosage: 20 MG QD PO
     Route: 048
     Dates: start: 20070123
  2. SIMVAHEXAL (SIMVASTATIN) [Suspect]
     Dates: end: 20070202
  3. CIPRALEX (ESCITALOPRAM) [Concomitant]
  4. STANGYL (TRIMIPRAMINE MALEATE) [Concomitant]
  5. PROMETHAZINE HCL [Concomitant]
  6. DIAZEPAM [Concomitant]

REACTIONS (2)
  - DRUG INTERACTION [None]
  - RHABDOMYOLYSIS [None]
